FAERS Safety Report 21681169 (Version 1)
Quarter: 2022Q4

REPORT INFORMATION
  Report Type: Spontaneous
  Country: IT (occurrence: IT)
  Receive Date: 20221205
  Receipt Date: 20221205
  Transmission Date: 20230113
  Serious: Yes (Hospitalization, Other)
  Sender: FDA-Public Use
  Company Number: IT-ZAMBON-202203383COR

PATIENT
  Age: 66 Year
  Sex: Female

DRUGS (5)
  1. XADAGO [Interacting]
     Active Substance: SAFINAMIDE MESYLATE
     Indication: Product used for unknown indication
     Route: 048
  2. BENSERAZIDE HYDROCHLORIDE\LEVODOPA [Interacting]
     Active Substance: BENSERAZIDE HYDROCHLORIDE\LEVODOPA
     Indication: Product used for unknown indication
     Dosage: 3/4 CPR X4/DIE
  3. ONGENTYS [Interacting]
     Active Substance: OPICAPONE
     Indication: Product used for unknown indication
     Route: 048
  4. TRAZODONE HYDROCHLORIDE [Concomitant]
     Active Substance: TRAZODONE HYDROCHLORIDE
     Route: 048
  5. NEBIVOLOL [Concomitant]
     Active Substance: NEBIVOLOL
     Route: 048

REACTIONS (5)
  - Drug interaction [Unknown]
  - Dyskinesia [Recovering/Resolving]
  - Vomiting [Recovering/Resolving]
  - Dizziness [Recovering/Resolving]
  - Malaise [Recovering/Resolving]

NARRATIVE: CASE EVENT DATE: 20221023
